FAERS Safety Report 12156887 (Version 5)
Quarter: 2016Q3

REPORT INFORMATION
  Report Type: Report from Study
  Country: BE (occurrence: BE)
  Receive Date: 20160307
  Receipt Date: 20160817
  Transmission Date: 20161109
  Serious: Yes (Hospitalization)
  Sender: FDA-Public Use
  Company Number: BE-ABBVIE-16P-013-1571908-00

PATIENT
  Age: 65 Year
  Sex: Female
  Weight: 50 kg

DRUGS (5)
  1. DUODOPA [Suspect]
     Active Substance: CARBIDOPA\LEVODOPA
     Indication: PARKINSON^S DISEASE
     Dosage: AM=5.5ML; CD=2.6ML/H FOR 16HRS; ED=1.6ML
     Route: 050
     Dates: start: 20160223, end: 20160225
  2. DUODOPA [Suspect]
     Active Substance: CARBIDOPA\LEVODOPA
     Dosage: AM=0ML; CD=2.6ML/H FOR 16HRS; ED=1.5ML
     Route: 050
     Dates: start: 20160225, end: 20160302
  3. REMERGON [Concomitant]
     Active Substance: MIRTAZAPINE
     Indication: PRODUCT USED FOR UNKNOWN INDICATION
  4. DUODOPA [Suspect]
     Active Substance: CARBIDOPA\LEVODOPA
     Dosage: AM:0ML, CD: 2.6ML/H FOR 16HRS; ND: 2ML/H FOR 8 HRS; ED: 1.5ML
     Route: 050
     Dates: start: 20160304, end: 20160317
  5. DUODOPA [Suspect]
     Active Substance: CARBIDOPA\LEVODOPA
     Dosage: AM:0ML, CD: 2.6ML/H FOR 16HRS; ND: 2ML/H FOR 8 HRS; ED: 1ML
     Route: 050
     Dates: start: 20160317

REACTIONS (17)
  - Abdominal pain [Recovered/Resolved]
  - Device dislocation [Unknown]
  - Intervertebral disc compression [Unknown]
  - Confusional state [Unknown]
  - Stoma site discharge [Unknown]
  - Cogwheel rigidity [Unknown]
  - Stoma site abscess [Unknown]
  - Anxiety [Recovered/Resolved]
  - Retroperitoneal abscess [Unknown]
  - Fatigue [Unknown]
  - Memory impairment [Unknown]
  - Hallucination [Unknown]
  - Poor quality sleep [Unknown]
  - Pyrexia [Recovered/Resolved]
  - Streptococcal abscess [Unknown]
  - Vitamin D deficiency [Unknown]
  - Pain [Recovered/Resolved]

NARRATIVE: CASE EVENT DATE: 20160227
